FAERS Safety Report 17891463 (Version 4)
Quarter: 2022Q2

REPORT INFORMATION
  Report Type: Spontaneous
  Country: GB (occurrence: GB)
  Receive Date: 20200612
  Receipt Date: 20220511
  Transmission Date: 20220721
  Serious: Yes (Hospitalization, Disabling, Other)
  Sender: FDA-Public Use
  Company Number: GB-ACCORD-183274

PATIENT
  Age: 13 Year
  Sex: Female

DRUGS (4)
  1. TRANEXAMIC ACID [Suspect]
     Active Substance: TRANEXAMIC ACID
     Indication: Craniosynostosis
     Dosage: 10 MILLIGRAM/KILOGRAM, INFUSED AT RATE OF 10 MG/KG/HOUR FOR REMAINDER PROCEDURE
     Route: 040
  2. TRANEXAMIC ACID [Suspect]
     Active Substance: TRANEXAMIC ACID
     Dosage: 10 MILLIGRAM/KILOGRAM/10 MG/KG ON INDUCTION/INFUSED AT RATE OF
     Route: 040
  3. TRANEXAMIC ACID [Suspect]
     Active Substance: TRANEXAMIC ACID
     Indication: Product used for unknown indication
     Dosage: 10 MILLIGRAM/KILOGRAM/10 MG/KG ON INDUCTION AND THEN 10 MG/KG/HOUR
     Route: 040
  4. TRANEXAMIC ACID [Suspect]
     Active Substance: TRANEXAMIC ACID
     Dosage: 10 MILLIGRAM/KILOGRAM/10 MG/KG ON INDUCTION/INFUSED AT RATE OF 10 MG/KG/HOUR
     Route: 040

REACTIONS (2)
  - Retinal artery occlusion [Not Recovered/Not Resolved]
  - Off label use [Unknown]
